FAERS Safety Report 18855067 (Version 6)
Quarter: 2022Q1

REPORT INFORMATION
  Report Type: Spontaneous
  Country: GB (occurrence: GB)
  Receive Date: 20210205
  Receipt Date: 20220304
  Transmission Date: 20220423
  Serious: Yes (Other)
  Sender: FDA-Public Use
  Company Number: GB-GLAXOSMITHKLINE-GB2021EME011160

PATIENT
  Age: 68 Year
  Sex: Male

DRUGS (2)
  1. LANSOPRAZOLE [Suspect]
     Active Substance: LANSOPRAZOLE
     Indication: Product used for unknown indication
     Dosage: UNK
     Route: 065
  2. NUCALA [Suspect]
     Active Substance: MEPOLIZUMAB
     Indication: Product used for unknown indication
     Dosage: 100 MG, Z, EVERY 4 WEEKS
     Route: 058

REACTIONS (17)
  - Atrial fibrillation [Unknown]
  - Angina pectoris [Unknown]
  - Foreign body in throat [Unknown]
  - Lower respiratory tract infection [Unknown]
  - Chest discomfort [Unknown]
  - Chest pain [Unknown]
  - Cough [Unknown]
  - Insomnia [Unknown]
  - Gastrooesophageal reflux disease [Unknown]
  - Stress [Unknown]
  - Dyspnoea [Unknown]
  - Wheezing [Unknown]
  - Cholelithiasis [Unknown]
  - Productive cough [Unknown]
  - Influenza [Unknown]
  - Abdominal discomfort [Unknown]
  - Pain [Recovered/Resolved]

NARRATIVE: CASE EVENT DATE: 20211101
